FAERS Safety Report 12526116 (Version 1)
Quarter: 2016Q3

REPORT INFORMATION
  Report Type: Spontaneous
  Country: US (occurrence: None)
  Receive Date: 20160701
  Receipt Date: 20160701
  Transmission Date: 20161109
  Serious: No
  Sender: FDA-Public Use
  Company Number: None

PATIENT
  Age: 60 Year
  Sex: Female
  Weight: 81.65 kg

DRUGS (1)
  1. CELECOXIB 100MG, 100 MG TRIGEN, MYLAN [Suspect]
     Active Substance: CELECOXIB
     Indication: BACK PAIN
     Dosage: 60 CAPSULE(S) TWICE A DAY TAKEN BY MOUTH
     Route: 048

REACTIONS (3)
  - Pruritus generalised [None]
  - Product substitution issue [None]
  - Drug hypersensitivity [None]

NARRATIVE: CASE EVENT DATE: 20160624
